FAERS Safety Report 21255278 (Version 1)
Quarter: 2022Q3

REPORT INFORMATION
  Report Type: Spontaneous
  Country: US (occurrence: US)
  Receive Date: 20220825
  Receipt Date: 20220825
  Transmission Date: 20221027
  Serious: No
  Sender: FDA-Public Use
  Company Number: US-MYLANLABS-2022M1087218

PATIENT
  Age: 5 Year
  Sex: Male

DRUGS (1)
  1. SEMGLEE (INSULIN GLARGINE) [Suspect]
     Active Substance: INSULIN GLARGINE
     Indication: Product used for unknown indication
     Dosage: UNK
     Route: 058

REACTIONS (5)
  - Mood altered [Unknown]
  - Abnormal behaviour [Unknown]
  - Hypersensitivity [Unknown]
  - Blood glucose decreased [Unknown]
  - Off label use [Unknown]
